FAERS Safety Report 13996306 (Version 1)
Quarter: 2017Q3

REPORT INFORMATION
  Report Type: Spontaneous
  Country: GB (occurrence: US)
  Receive Date: 20170921
  Receipt Date: 20170921
  Transmission Date: 20171128
  Serious: Yes (Life-Threatening, Other)
  Sender: FDA-Public Use
  Company Number: GB-PFIZER INC-2017406725

PATIENT
  Sex: Male

DRUGS (4)
  1. XANAX [Suspect]
     Active Substance: ALPRAZOLAM
     Dosage: 10 DF, UNK
  2. XANAX [Suspect]
     Active Substance: ALPRAZOLAM
     Indication: DEPRESSION
     Dosage: TWO TO FOUR PILLS A DAY
     Route: 045
  3. XANAX [Suspect]
     Active Substance: ALPRAZOLAM
     Dosage: BETWEEN 25 AND 40 PILLS A DAY
  4. XANAX [Suspect]
     Active Substance: ALPRAZOLAM
     Indication: ANXIETY
     Dosage: ONE OR TWO 1MG PILLS A DAY

REACTIONS (10)
  - Intentional product misuse [Unknown]
  - Blindness [Unknown]
  - Psychotic disorder [Unknown]
  - Pain [Unknown]
  - Prescription drug used without a prescription [Unknown]
  - Drug dependence [Unknown]
  - Withdrawal syndrome [Unknown]
  - Underweight [Unknown]
  - Hallucination [Unknown]
  - Confusional state [Unknown]
